FAERS Safety Report 20886232 (Version 1)
Quarter: 2022Q2

REPORT INFORMATION
  Report Type: Report from Study
  Country: US (occurrence: US)
  Receive Date: 20220527
  Receipt Date: 20220527
  Transmission Date: 20220721
  Serious: Yes (Other)
  Sender: FDA-Public Use
  Company Number: US-SANOFI-01117393

PATIENT
  Age: 44 Year
  Sex: Male

DRUGS (1)
  1. DUPILUMAB [Suspect]
     Active Substance: DUPILUMAB
     Indication: Nasal polyps
     Dosage: UNK, QOW
     Route: 058
     Dates: start: 20200501

REACTIONS (2)
  - Sjogren^s syndrome [Unknown]
  - Product use in unapproved indication [Unknown]
